FAERS Safety Report 20852223 (Version 12)
Quarter: 2022Q4

REPORT INFORMATION
  Report Type: Report from Study
  Country: BR (occurrence: BR)
  Receive Date: 20220520
  Receipt Date: 20221129
  Transmission Date: 20230112
  Serious: Yes (Hospitalization, Other)
  Sender: FDA-Public Use
  Company Number: BR-009507513-2111BRA004438

PATIENT
  Age: 72 Year
  Sex: Male
  Weight: 72 kg

DRUGS (30)
  1. PACLITAXEL [Suspect]
     Active Substance: PACLITAXEL
     Indication: Non-small cell lung cancer metastatic
     Dosage: D1, D8, D15
     Route: 042
     Dates: start: 20210112, end: 20210324
  2. PACLITAXEL [Suspect]
     Active Substance: PACLITAXEL
     Dosage: D1, D8, D15
     Route: 042
     Dates: start: 20210331, end: 20210408
  3. CARBOPLATIN [Suspect]
     Active Substance: CARBOPLATIN
     Indication: Non-small cell lung cancer metastatic
     Dosage: AREA UNDER THE CURVE (AUC) OF 6 MG/ML/MIN
     Route: 042
     Dates: start: 20210112, end: 20210203
  4. CARBOPLATIN [Suspect]
     Active Substance: CARBOPLATIN
     Route: 042
     Dates: start: 20210311, end: 20210311
  5. CARBOPLATIN [Suspect]
     Active Substance: CARBOPLATIN
     Route: 042
     Dates: start: 20210331, end: 20210331
  6. PEMBROLIZUMAB [Suspect]
     Active Substance: PEMBROLIZUMAB
     Indication: Non-small cell lung cancer metastatic
     Route: 042
     Dates: start: 20210112, end: 20210203
  7. PEMBROLIZUMAB [Suspect]
     Active Substance: PEMBROLIZUMAB
     Route: 042
     Dates: start: 20210311, end: 20210311
  8. PEMBROLIZUMAB [Suspect]
     Active Substance: PEMBROLIZUMAB
     Route: 042
     Dates: start: 20210331, end: 20210929
  9. PEMBROLIZUMAB [Suspect]
     Active Substance: PEMBROLIZUMAB
     Route: 042
     Dates: start: 20211019
  10. OLAPARIB [Suspect]
     Active Substance: OLAPARIB
     Indication: Non-small cell lung cancer metastatic
     Route: 048
     Dates: start: 20210513, end: 20211019
  11. AKYNZEO (NETUPITANT\PALONOSETRON) [Concomitant]
     Active Substance: NETUPITANT\PALONOSETRON
     Indication: Premedication
     Dosage: 1 CAPSULE, ONCE
     Route: 048
     Dates: start: 20210311, end: 20210311
  12. AKYNZEO (NETUPITANT\PALONOSETRON) [Concomitant]
     Active Substance: NETUPITANT\PALONOSETRON
     Indication: Chemotherapy side effect prophylaxis
     Dosage: 1 CAPSULE, ONCE
     Route: 048
     Dates: start: 20210324, end: 20210324
  13. CAPTOPRIL [Concomitant]
     Active Substance: CAPTOPRIL
     Indication: Hypertension
     Route: 048
     Dates: start: 199009
  14. HYDROCHLOROTHIAZIDE [Concomitant]
     Active Substance: HYDROCHLOROTHIAZIDE
     Indication: Hypertension
     Route: 048
     Dates: start: 199009
  15. BROMAZEPAM [Concomitant]
     Active Substance: BROMAZEPAM
     Indication: Anxiety
     Route: 048
     Dates: start: 200001
  16. TIOTROPIUM BROMIDE [Concomitant]
     Active Substance: TIOTROPIUM BROMIDE
     Indication: Chronic obstructive pulmonary disease
     Route: 055
     Dates: start: 202011
  17. FORMOTEROL FUMARATE [Concomitant]
     Active Substance: FORMOTEROL FUMARATE
     Indication: Chronic obstructive pulmonary disease
     Route: 055
     Dates: start: 202011
  18. AKYNZEO [Concomitant]
     Indication: Chemotherapy side effect prophylaxis
     Dosage: 1 CAPSULE, ONCE
     Route: 048
     Dates: start: 20210311, end: 20210311
  19. AKYNZEO [Concomitant]
     Dosage: 1 CAPSULE, ONCE
     Route: 048
     Dates: start: 20210324, end: 20210324
  20. DEXAMETHASONE [Concomitant]
     Active Substance: DEXAMETHASONE
     Indication: Chemotherapy side effect prophylaxis
     Dosage: 1 MILLIGRAM, ONCE
     Route: 042
     Dates: start: 20210311, end: 20210311
  21. DEXAMETHASONE [Concomitant]
     Active Substance: DEXAMETHASONE
     Dosage: 10 MILLIGRAM, ONCE
     Route: 042
     Dates: start: 20210324, end: 20210324
  22. FOLIC ACID [Concomitant]
     Active Substance: FOLIC ACID
     Indication: Product used for unknown indication
     Dosage: PER DAY
     Route: 065
     Dates: start: 20211118
  23. POTASSIUM CHLORIDE [Concomitant]
     Active Substance: POTASSIUM CHLORIDE
     Indication: Hypokalaemia
     Route: 065
  24. DIPYRONE [Concomitant]
     Active Substance: DIPYRONE
     Indication: Pain prophylaxis
     Route: 065
  25. DIPYRONE [Concomitant]
     Active Substance: DIPYRONE
     Indication: Hypersensitivity
     Route: 065
  26. BROMOPRIDE [Concomitant]
     Active Substance: BROMOPRIDE
     Indication: Nausea
     Route: 065
  27. BROMOPRIDE [Concomitant]
     Active Substance: BROMOPRIDE
     Indication: Vomiting
  28. TRAMADOL HYDROCHLORIDE [Concomitant]
     Active Substance: TRAMADOL HYDROCHLORIDE
     Indication: Pain
     Route: 065
  29. OMEPRAZOLE [Concomitant]
     Active Substance: OMEPRAZOLE
     Indication: Peptic ulcer
     Route: 065
  30. IVERMECTIN [Concomitant]
     Active Substance: IVERMECTIN
     Indication: Strongyloidiasis
     Route: 065

REACTIONS (1)
  - Myelodysplastic syndrome [Recovered/Resolved]

NARRATIVE: CASE EVENT DATE: 20210324
